FAERS Safety Report 8876318 (Version 2)
Quarter: 2014Q2

REPORT INFORMATION
  Report Type: Spontaneous
  Country: DE (occurrence: DE)
  Receive Date: 20121031
  Receipt Date: 20140508
  Transmission Date: 20141212
  Serious: Yes (Death, Other)
  Sender: FDA-Public Use
  Company Number: DE-JNJFOC-20120909248

PATIENT
  Sex: Male
  Weight: 97.05 kg

DRUGS (7)
  1. XARELTO [Suspect]
     Indication: ATRIAL FIBRILLATION
     Route: 048
     Dates: start: 20120302
  2. XARELTO [Suspect]
     Indication: CEREBROVASCULAR ACCIDENT PROPHYLAXIS
     Route: 048
     Dates: start: 20120302
  3. PROVAS COMP [Concomitant]
     Route: 065
  4. TORASEMID [Concomitant]
     Route: 065
  5. LANTUS [Concomitant]
     Route: 065
  6. CONCOR [Concomitant]
     Route: 065
  7. EXELON [Concomitant]
     Route: 065

REACTIONS (2)
  - Haematemesis [Fatal]
  - Upper gastrointestinal haemorrhage [Fatal]
